FAERS Safety Report 23345361 (Version 1)
Quarter: 2023Q4

REPORT INFORMATION
  Report Type: Spontaneous
  Country: US (occurrence: US)
  Receive Date: 20231228
  Receipt Date: 20231228
  Transmission Date: 20240109
  Serious: Yes (Hospitalization, Other)
  Sender: FDA-Public Use
  Company Number: US-BAXTER-2023BAX038913

PATIENT
  Age: 3 Decade
  Sex: Male

DRUGS (18)
  1. DOXORUBICIN [Suspect]
     Active Substance: DOXORUBICIN
     Indication: Hodgkin^s disease
     Dosage: BV-AVE-PC, 5 CYCLES (IT WAS 50% DOSE REDUCED FOR DECREASED LIVER FUNCTION FOR CYCLE 1 AND THEN INCRE
     Route: 065
  2. DOXORUBICIN [Suspect]
     Active Substance: DOXORUBICIN
     Indication: Hodgkin^s disease nodular sclerosis stage IV
  3. CYCLOPHOSPHAMIDE [Suspect]
     Active Substance: CYCLOPHOSPHAMIDE
     Indication: Hodgkin^s disease
     Dosage: BV-PC, CYCLOPHOSPHAMIDE ON DAY 5 AND BOTH AGAIN ON DAY 17
     Route: 065
  4. CYCLOPHOSPHAMIDE [Suspect]
     Active Substance: CYCLOPHOSPHAMIDE
     Indication: Hodgkin^s disease nodular sclerosis stage IV
     Dosage: BV-AVE-PC FOR 5 CYCLES (IT WAS 50% DOSE REDUCED FOR DECREASED LIVER FUNCTION FOR CYCLE 1 AND THEN IN
     Route: 065
  5. BRENTUXIMAB VEDOTIN [Suspect]
     Active Substance: BRENTUXIMAB VEDOTIN
     Indication: Hodgkin^s disease
     Dosage: TWO CYCLES DOSE REDUCED FOR DECREASED LIVER FUNCTION TO 1.2MG/ KG (BV-PC) DAY 1
     Route: 065
  6. BRENTUXIMAB VEDOTIN [Suspect]
     Active Substance: BRENTUXIMAB VEDOTIN
     Indication: Hodgkin^s disease nodular sclerosis stage IV
     Dosage: AGAIN ON DAY 17
     Route: 065
  7. BRENTUXIMAB VEDOTIN [Suspect]
     Active Substance: BRENTUXIMAB VEDOTIN
     Dosage: BV-AVE-PC, 5 CYCLES (IT WAS 50% DOSE REDUCED FOR DECREASED LIVER FUNCTION FOR CYCLE 1 AND THEN INCRE
     Route: 065
  8. PREDNISONE [Suspect]
     Active Substance: PREDNISONE
     Indication: Hodgkin^s disease
     Dosage: BV-PC
     Route: 065
  9. PREDNISONE [Suspect]
     Active Substance: PREDNISONE
     Indication: Hodgkin^s disease nodular sclerosis stage IV
     Dosage: BV-AVE-PC, 5 CYCLES (IT WAS 50% DOSE REDUCED FOR DECREASED LIVER FUNCTION FOR CYCLE 1 AND THEN INCRE
     Route: 065
  10. PREDNISONE [Suspect]
     Active Substance: PREDNISONE
     Dosage: 35 MG ALSO GIVEN TWO TIMES PER DAY FOR 7DAYS AT THE START OF CYCLES 1-3
     Route: 065
  11. VINCRISTINE [Suspect]
     Active Substance: VINCRISTINE
     Indication: Hodgkin^s disease
     Dosage: BV-AVE-PC FOR 5 CYCLES (IT WAS 50% DOSE REDUCED FOR DECREASED LIVER FUNCTION FOR CYCLE 1 AND THEN IN
     Route: 065
  12. VINCRISTINE [Suspect]
     Active Substance: VINCRISTINE
     Indication: Hodgkin^s disease nodular sclerosis stage IV
  13. ETOPOSIDE [Suspect]
     Active Substance: ETOPOSIDE
     Indication: Hodgkin^s disease
     Dosage: (BV-AVE-PC FOR 5 CYCLES (IT WAS 50% DOSE REDUCED FOR DECREASED LIVER FUNCTION FOR CYCLE 1 AND THEN I
     Route: 065
  14. ETOPOSIDE [Suspect]
     Active Substance: ETOPOSIDE
     Indication: Hodgkin^s disease nodular sclerosis stage IV
  15. COLESTIPOL [Concomitant]
     Active Substance: COLESTIPOL
     Indication: Pruritus
     Route: 065
  16. DIPHENHYDRAMINE [Concomitant]
     Active Substance: DIPHENHYDRAMINE
     Indication: Pruritus
     Route: 065
  17. URSODIOL [Concomitant]
     Active Substance: URSODIOL
     Indication: Premedication
     Route: 065
  18. PREDNISONE [Concomitant]
     Active Substance: PREDNISONE
     Indication: Premedication
     Dosage: DOSE OF 35 MG TWO TIMES PER DAY WAS GIVEN FOR 7 DAYS
     Route: 065

REACTIONS (5)
  - Pneumonitis [Unknown]
  - Febrile neutropenia [Unknown]
  - Alpha haemolytic streptococcal infection [Unknown]
  - Clostridium difficile colitis [Unknown]
  - Pneumonia klebsiella [Unknown]
